FAERS Safety Report 18975915 (Version 1)
Quarter: 2021Q1

REPORT INFORMATION
  Report Type: Report from Study
  Country: US (occurrence: US)
  Receive Date: 20210306
  Receipt Date: 20210306
  Transmission Date: 20210420
  Serious: No
  Sender: FDA-Public Use
  Company Number: NVSC2021US046698

PATIENT

DRUGS (1)
  1. MAYZENT [Suspect]
     Active Substance: SIPONIMOD
     Indication: DRY MOUTH
     Dosage: 2 MG, QD
     Route: 048
     Dates: start: 20210130

REACTIONS (1)
  - Dry mouth [Recovering/Resolving]
